FAERS Safety Report 10206716 (Version 1)
Quarter: 2014Q2

REPORT INFORMATION
  Report Type: Spontaneous
  Country: US (occurrence: None)
  Receive Date: 20140527
  Receipt Date: 20140527
  Transmission Date: 20141212
  Serious: No
  Sender: FDA-Public Use
  Company Number: None

PATIENT
  Age: 75 Year
  Sex: Female

DRUGS (6)
  1. TASIGNA [Suspect]
     Indication: CHRONIC MYELOID LEUKAEMIA
     Route: 048
     Dates: start: 20111215
  2. TYLENOL [Concomitant]
  3. MELOXICAM [Concomitant]
  4. OMEPRAZOLE [Suspect]
  5. LISINOPRIL [Suspect]
  6. GABAPENTIN [Concomitant]

REACTIONS (1)
  - Convulsion [None]
